FAERS Safety Report 8759173 (Version 3)
Quarter: 2012Q4

REPORT INFORMATION
  Report Type: 
  Country: JP (occurrence: JP)
  Receive Date: 20120829
  Receipt Date: 20121023
  Transmission Date: 20130627
  Serious: Yes (Other)
  Sender: FDA-Public Use
  Company Number: JP-ELI_LILLY_AND_COMPANY-JP201207006219

PATIENT
  Age: 61 Year
  Sex: Male
  Weight: 50 kg

DRUGS (9)
  1. ZYPREXA [Suspect]
     Indication: SCHIZOPHRENIA
     Dosage: 20 mg, qd
     Route: 048
     Dates: start: 20110120, end: 20120814
  2. REBAMIPIDE [Concomitant]
     Dosage: UNK
     Route: 048
     Dates: start: 201004
  3. PANTOSIN [Concomitant]
     Dosage: UNK
     Route: 048
     Dates: start: 201004
  4. MAGLAX [Concomitant]
     Dosage: UNK
     Route: 048
     Dates: start: 201004
  5. SENNOSIDE [Concomitant]
     Dosage: UNK
     Route: 048
     Dates: start: 201004
  6. LONASEN [Concomitant]
     Dosage: UNK
     Route: 048
     Dates: start: 20110803, end: 20120724
  7. ABILIFY [Concomitant]
     Dosage: UNK
     Route: 048
     Dates: start: 20110120, end: 20120724
  8. VEGETAMIN B [Concomitant]
     Dosage: UNK
     Route: 048
     Dates: end: 20120724
  9. AMEZINIUM METILSULFATE [Concomitant]
     Dosage: UNK
     Route: 048

REACTIONS (1)
  - White blood cell count decreased [Recovering/Resolving]
